FAERS Safety Report 8228810-3 (Version None)
Quarter: 2012Q1

REPORT INFORMATION
  Report Type: 
  Country: None (occurrence: None)
  Receive Date: 20120322
  Receipt Date: 20120314
  Transmission Date: 20120608
  Serious: Yes (Death, Hospitalization)
  Sender: FDA-Public Use
  Company Number: AU-GLAXOSMITHKLINE-B0642872C

PATIENT
  Sex: Female
  Weight: 56.6 kg

DRUGS (2)
  1. PACLITAXEL [Suspect]
     Indication: BREAST CANCER METASTATIC
     Dosage: 105MG WEEKLY
     Route: 042
     Dates: start: 20100312, end: 20100528
  2. LAPATINIB [Suspect]
     Indication: BREAST CANCER METASTATIC
     Dosage: 750MG PER DAY
     Route: 048
     Dates: start: 20100312, end: 20100521

REACTIONS (6)
  - DIARRHOEA [None]
  - VOMITING [None]
  - CARDIAC FAILURE CONGESTIVE [None]
  - INFECTION [None]
  - PULMONARY OEDEMA [None]
  - CARDIO-RESPIRATORY ARREST [None]
